FAERS Safety Report 13294430 (Version 1)
Quarter: 2017Q1

REPORT INFORMATION
  Report Type: Spontaneous
  Country: CA (occurrence: CA)
  Receive Date: 20170303
  Receipt Date: 20170303
  Transmission Date: 20170428
  Serious: Yes (Hospitalization)
  Sender: FDA-Public Use
  Company Number: CA-TEVA-745392USA

PATIENT
  Age: 78 Year
  Sex: Female

DRUGS (10)
  1. THIAMINE. [Concomitant]
     Active Substance: THIAMINE
     Dosage: AS AN IV VITAMIN INFUSION
     Route: 041
  2. CALCIUM [Concomitant]
     Active Substance: CALCIUM
     Route: 065
  3. MAGNESIUM SULFATE. [Concomitant]
     Active Substance: MAGNESIUM SULFATE
     Dosage: AS AN IV VITAMIN INFUSION
     Route: 041
  4. TAMOXIFEN [Suspect]
     Active Substance: TAMOXIFEN
     Indication: BREAST CANCER
     Dosage: 20 MILLIGRAM DAILY;
     Route: 065
  5. GLYCOPYRROLATE. [Suspect]
     Active Substance: GLYCOPYRROLATE
     Indication: CHRONIC OBSTRUCTIVE PULMONARY DISEASE
     Route: 065
  6. MULTIVITAMIN [Concomitant]
     Active Substance: VITAMINS
     Route: 065
  7. FOLIC ACID. [Concomitant]
     Active Substance: FOLIC ACID
     Dosage: AS AN IV VITAMIN INFUSION
     Route: 041
  8. MULTIVITAMIN [Concomitant]
     Active Substance: VITAMINS
     Dosage: AS AN IV VITAMIN INFUSION
     Route: 041
  9. SALBUTAMOL [Concomitant]
     Active Substance: ALBUTEROL
     Route: 065
  10. DIMENHYDRINATE. [Concomitant]
     Active Substance: DIMENHYDRINATE
     Indication: VOMITING
     Dosage: 2 TABLETS
     Route: 065

REACTIONS (1)
  - Electrocardiogram QT prolonged [Recovering/Resolving]
